FAERS Safety Report 13237206 (Version 20)
Quarter: 2018Q4

REPORT INFORMATION
  Report Type: Spontaneous
  Country: IT (occurrence: IT)
  Receive Date: 20170215
  Receipt Date: 20181012
  Transmission Date: 20190204
  Serious: Yes (Hospitalization, Other)
  Sender: FDA-Public Use
  Company Number: IT-PFIZER INC-2017064850

PATIENT
  Age: 82 Year
  Sex: Female

DRUGS (8)
  1. OMEPRAZOLE. [Suspect]
     Active Substance: OMEPRAZOLE
     Dosage: 20 MG, DAILY
     Route: 048
  2. TICLOPIDINE [Suspect]
     Active Substance: TICLOPIDINE
     Dosage: 250 MG BID
  3. ROSUVASTATIN. [Suspect]
     Active Substance: ROSUVASTATIN
     Dosage: 20 MG, DAILY
  4. CETIRIZINE [Suspect]
     Active Substance: CETIRIZINE HYDROCHLORIDE
     Dosage: 10 MG, DAILY (TOTAL)
  5. GABAPENTIN. [Suspect]
     Active Substance: GABAPENTIN
     Dosage: 300 MG, 3X/DAY
  6. AMLODIPINE BESILATE [Suspect]
     Active Substance: AMLODIPINE BESYLATE
     Dosage: 10 MG, DAILY
  7. RAMIPRIL. [Suspect]
     Active Substance: RAMIPRIL
     Dosage: 2.5 MG, DAILY
  8. OXYCODONE/NALOXONE [Suspect]
     Active Substance: NALOXONE HYDROCHLORIDE\OXYCODONE HYDROCHLORIDE
     Dosage: UNK (OXYCODONE/NALOXONE 5 + 2.5 MG TOTAL)
     Route: 048

REACTIONS (7)
  - Malaise [Recovered/Resolved]
  - Condition aggravated [Recovered/Resolved]
  - Asthenia [Recovered/Resolved]
  - Hypercreatininaemia [Recovered/Resolved]
  - Anaemia [Recovered/Resolved]
  - Renal impairment [Recovered/Resolved]
  - Hyperkalaemia [Recovered/Resolved]
